FAERS Safety Report 14488317 (Version 2)
Quarter: 2018Q1

REPORT INFORMATION
  Report Type: Spontaneous
  Country: ES (occurrence: ES)
  Receive Date: 20180205
  Receipt Date: 20180220
  Transmission Date: 20180509
  Serious: Yes (Hospitalization)
  Sender: FDA-Public Use
  Company Number: ES-ALLERGAN-1804295US

PATIENT
  Age: 71 Year
  Sex: Female

DRUGS (4)
  1. FLUVOXAMINE [Suspect]
     Active Substance: FLUVOXAMINE
     Indication: MAJOR DEPRESSION
     Dosage: 200 MG, QD
     Route: 065
  2. CLOMIPRAMINE [Suspect]
     Active Substance: CLOMIPRAMINE
     Indication: MAJOR DEPRESSION
     Dosage: 150 MG, QD
     Route: 065
  3. ESCITALOPRAM OXALATE UNK [Suspect]
     Active Substance: ESCITALOPRAM OXALATE
     Indication: MAJOR DEPRESSION
     Dosage: UNK
     Route: 065
  4. ARIPIPRAZOLE. [Suspect]
     Active Substance: ARIPIPRAZOLE
     Indication: MAJOR DEPRESSION
     Dosage: 10 MG, UNK
     Route: 065

REACTIONS (19)
  - Psychiatric symptom [Recovered/Resolved]
  - Weight decreased [Unknown]
  - Dysphagia [Unknown]
  - Psychomotor retardation [Recovered/Resolved]
  - Vitamin B12 deficiency [Unknown]
  - Anxiety [Recovered/Resolved]
  - Drug effect incomplete [Unknown]
  - Chronic gastritis [Unknown]
  - Irritability [Unknown]
  - Condition aggravated [Recovered/Resolved]
  - Gait disturbance [Recovered/Resolved]
  - Speech disorder [Recovered/Resolved]
  - Feeding disorder [Unknown]
  - Depressed mood [Recovered/Resolved]
  - Loss of personal independence in daily activities [Recovered/Resolved]
  - Judgement impaired [Recovered/Resolved]
  - Parkinsonism [Recovered/Resolved]
  - Drug ineffective [Unknown]
  - Tremor [Recovered/Resolved]
